FAERS Safety Report 25604020 (Version 1)
Quarter: 2025Q3

REPORT INFORMATION
  Report Type: Spontaneous
  Country: US (occurrence: US)
  Receive Date: 20250725
  Receipt Date: 20250725
  Transmission Date: 20251021
  Serious: Yes (Other)
  Sender: NOVO NORDISK
  Company Number: US-NOVOPROD-1483749

PATIENT
  Age: 67 Year
  Sex: Female

DRUGS (1)
  1. OZEMPIC [Suspect]
     Active Substance: SEMAGLUTIDE
     Indication: Type 2 diabetes mellitus
     Dosage: 1 MG, QW
     Route: 058
     Dates: start: 2023

REACTIONS (6)
  - Systemic lupus erythematosus [Unknown]
  - Weight increased [Unknown]
  - Increased appetite [Unknown]
  - Tendon injury [Unknown]
  - Tendon injury [Unknown]
  - Off label use [Unknown]

NARRATIVE: CASE EVENT DATE: 20230701
